FAERS Safety Report 6203159-9 (Version None)
Quarter: 2009Q2

REPORT INFORMATION
  Report Type: 
  Country: None (occurrence: None)
  Receive Date: 20090521
  Receipt Date: 20090512
  Transmission Date: 20091009
  Serious: Yes (Other)
  Sender: FDA-Public Use
  Company Number: TRP_06222_2009

PATIENT
  Sex: Male

DRUGS (7)
  1. AMPHOTERICIN B [Suspect]
     Indication: FEBRILE NEUTROPENIA
     Dosage: (250 MG INTRAVENOUS (NOT OTHERWISE SPECIFIED))
     Route: 042
     Dates: start: 20090420, end: 20090420
  2. MEROPENEM [Concomitant]
  3. VANCOMYCIN HCL [Concomitant]
  4. SINERSUL [Concomitant]
  5. METRONIDAZOLE [Concomitant]
  6. FUROSEMIDE [Concomitant]
  7. 0.9% GLUCOSE INF [Concomitant]

REACTIONS (4)
  - DELIRIUM [None]
  - INFUSION RELATED REACTION [None]
  - MYALGIA [None]
  - PYREXIA [None]
